FAERS Safety Report 4802156-5 (Version None)
Quarter: 2005Q4

REPORT INFORMATION
  Report Type: 
  Country: None (occurrence: None)
  Receive Date: 20051018
  Receipt Date: 20051005
  Transmission Date: 20060501
  Serious: Yes (Other)
  Sender: FDA-Public Use
  Company Number: 200519027GDDC

PATIENT
  Age: 27 Year
  Sex: Female

DRUGS (2)
  1. LANTUS [Suspect]
     Indication: DIABETES MELLITUS INSULIN-DEPENDENT
     Route: 058
     Dates: start: 20040528
  2. ACTRAPID [Concomitant]
     Indication: DIABETES MELLITUS INSULIN-DEPENDENT
     Dosage: DOSE: VARIABLE
     Route: 058
     Dates: start: 19900101

REACTIONS (3)
  - EYE DISORDER [None]
  - EYE HAEMORRHAGE [None]
  - RETINOPATHY PROLIFERATIVE [None]
